FAERS Safety Report 8431726-0 (Version None)
Quarter: 2012Q2

REPORT INFORMATION
  Report Type: 
  Country: None (occurrence: None)
  Receive Date: 20120607
  Receipt Date: 20120607
  Transmission Date: 20120825
  Serious: No
  Sender: FDA-Public Use
  Company Number: None

PATIENT
  Sex: Female

DRUGS (1)
  1. ENBREL [Suspect]
     Indication: RHEUMATOID ARTHRITIS
     Dosage: 50MG Q4W SQ
     Route: 058
     Dates: start: 20081125, end: 20120501

REACTIONS (1)
  - WHITE BLOOD CELL COUNT DECREASED [None]
